FAERS Safety Report 8990897 (Version 1)
Quarter: 2012Q4

REPORT INFORMATION
  Report Type: Spontaneous
  Country: GB (occurrence: None)
  Receive Date: 20121220
  Receipt Date: 20121220
  Transmission Date: 20130627
  Serious: Yes (Life-Threatening, Hospitalization)
  Sender: FDA-Public Use
  Company Number: CL-457-2012

PATIENT
  Age: 24 Year
  Sex: Male

DRUGS (2)
  1. ONDANSETRON [Suspect]
     Indication: SELF-MEDICATION
     Dosage: single dose
     Route: 048
  2. ONDANSETRON [Suspect]
     Indication: NAUSEA
     Dosage: single dose
     Route: 048

REACTIONS (1)
  - Toxic epidermal necrolysis [None]
